FAERS Safety Report 12996353 (Version 2)
Quarter: 2016Q4

REPORT INFORMATION
  Report Type: Report from Study
  Country: None (occurrence: BE)
  Receive Date: 20161203
  Receipt Date: 20161205
  Transmission Date: 20170207
  Serious: Yes (Death, Hospitalization)
  Sender: FDA-Public Use
  Company Number: BE-ABBVIE-16K-013-1798537-00

PATIENT
  Sex: Female

DRUGS (3)
  1. DUODOPA [Suspect]
     Active Substance: CARBIDOPA\LEVODOPA
     Dosage: DOSES CONTINUOUSLY MONITORED AND ADAPTED
     Route: 050
     Dates: start: 20130530, end: 20161005
  2. DUODOPA [Suspect]
     Active Substance: CARBIDOPA\LEVODOPA
     Dosage: AM= 2 ML; CD= (4.9 (AM) + 6 ML (PM) ML/H DURING 16 HRS; ND= 1 ML/H DURING 8 HRS; ED= 6 ML
     Route: 050
     Dates: start: 20161005
  3. DUODOPA [Suspect]
     Active Substance: CARBIDOPA\LEVODOPA
     Indication: PARKINSON^S DISEASE
     Dosage: MD= 6 ML; CD= 4.4 ML/H DURING 16 HRS; ND= 2.5 ML/H DURING 8 HRS; ED= 3 ML
     Route: 050
     Dates: start: 20130527, end: 20130530

REACTIONS (2)
  - Death [Fatal]
  - Nervous system disorder [Unknown]
